FAERS Safety Report 9018897 (Version 1)
Quarter: 2013Q1

REPORT INFORMATION
  Report Type: Spontaneous
  Country: US (occurrence: US)
  Receive Date: 20130118
  Receipt Date: 20130118
  Transmission Date: 20140127
  Serious: Yes (Death)
  Sender: FDA-Public Use
  Company Number: US-ABBOTT-13P-163-1037215-00

PATIENT
  Age: 34 Year
  Sex: Female

DRUGS (5)
  1. ACETAMINOPHEN\HYDROCODONE [Suspect]
     Indication: PRODUCT USED FOR UNKNOWN INDICATION
     Dosage: ROUTE: INJESTION, INHALATION, ASPIRATION AND UNKNOWN ROUTE
  2. AMPHETAMINES [Suspect]
     Indication: PRODUCT USED FOR UNKNOWN INDICATION
     Dosage: ROUTE: INJESTION, INHALATION, ASPIRATION AND UNKNOWN ROUTE
  3. COCAINE [Suspect]
     Indication: PRODUCT USED FOR UNKNOWN INDICATION
     Dosage: ROUTE: INJESTION, INHALATION, ASPIRATION AND UNKNOWN ROUTE
  4. NORTRIPTYLINE [Suspect]
     Indication: PRODUCT USED FOR UNKNOWN INDICATION
     Dosage: ROUTE: INJESTION, INHALATION, ASPIRATION AND UNKNOWN ROUTE
  5. OXYCODONE [Suspect]
     Indication: PRODUCT USED FOR UNKNOWN INDICATION
     Dosage: ROUTE: INJESTION, INHALATION, ASPIRATION AND UNKNOWN ROUTE

REACTIONS (2)
  - Intentional drug misuse [Fatal]
  - Cardio-respiratory arrest [Fatal]
